FAERS Safety Report 6440939-9 (Version None)
Quarter: 2009Q4

REPORT INFORMATION
  Report Type: 
  Country: None (occurrence: None)
  Receive Date: 20091113
  Receipt Date: 20091113
  Transmission Date: 20100525
  Serious: Yes (Life-Threatening)
  Sender: FDA-Public Use
  Company Number: None

PATIENT

DRUGS (1)
  1. LUPRON [Suspect]

REACTIONS (14)
  - CHILLS [None]
  - CLUSTER HEADACHE [None]
  - HYPERHIDROSIS [None]
  - INCORRECT DOSE ADMINISTERED [None]
  - INSOMNIA [None]
  - LUMBAR VERTEBRAL FRACTURE [None]
  - METAL POISONING [None]
  - MIGRAINE [None]
  - NAUSEA [None]
  - NODULE [None]
  - POLLAKIURIA [None]
  - PYREXIA [None]
  - TESTICULAR PAIN [None]
  - VOMITING [None]
